FAERS Safety Report 8174158-5 (Version None)
Quarter: 2012Q1

REPORT INFORMATION
  Report Type: 
  Country: None (occurrence: None)
  Receive Date: 20120229
  Receipt Date: 20120214
  Transmission Date: 20120608
  Serious: Yes (Life-Threatening, Other)
  Sender: FDA-Public Use
  Company Number: ES-ROCHE-1040476

PATIENT
  Sex: Female

DRUGS (9)
  1. LUCENTIS [Suspect]
     Route: 050
     Dates: start: 20120101, end: 20120117
  2. LUCENTIS [Suspect]
     Indication: AGE-RELATED MACULAR DEGENERATION
     Dosage: IN LEFT EYE
     Route: 050
     Dates: start: 20110301
  3. LUCENTIS [Suspect]
     Route: 050
     Dates: start: 20110601
  4. LUCENTIS [Suspect]
     Route: 050
     Dates: start: 20111101
  5. LUCENTIS [Suspect]
     Route: 050
     Dates: start: 20110501
  6. LUCENTIS [Suspect]
     Route: 050
     Dates: start: 20110701, end: 20110701
  7. LUCENTIS [Suspect]
     Route: 050
     Dates: start: 20111001
  8. LUCENTIS [Suspect]
     Route: 050
     Dates: start: 20111201
  9. LUCENTIS [Suspect]
     Route: 050
     Dates: start: 20110401

REACTIONS (2)
  - INAPPROPRIATE SCHEDULE OF DRUG ADMINISTRATION [None]
  - ACUTE MYOCARDIAL INFARCTION [None]
